FAERS Safety Report 9039596 (Version 1)
Quarter: 2013Q1

REPORT INFORMATION
  Report Type: Report from Study
  Country: US (occurrence: US)
  Receive Date: 20130129
  Receipt Date: 20130129
  Transmission Date: 20140127
  Serious: No
  Sender: FDA-Public Use
  Company Number: US-ABBOTT-12P-163-0943025-00

PATIENT
  Age: 52 Year
  Sex: Female

DRUGS (24)
  1. HUMIRA 40 MG/0.8 ML PEN [Suspect]
     Indication: CROHN^S DISEASE
     Dosage: LOADING DOSE
     Dates: start: 20120522
  2. ALENDRONATE [Concomitant]
     Indication: OSTEOPENIA
  3. ALENDRONATE [Concomitant]
     Indication: OSTEOPOROSIS
  4. AMOXICILLIN [Concomitant]
     Indication: PRODUCT USED FOR UNKNOWN INDICATION
     Dosage: 500MG 4 TIMES A DAY AS NEEDED
  5. ADRENAL REBUILDER [Concomitant]
     Indication: BLOOD CORTISOL DECREASED
  6. ARMOR THYROID [Concomitant]
     Indication: HYPOTHYROIDISM
  7. LISINOPRIL [Concomitant]
     Indication: HYPERTENSION
     Dosage: 40MG DAILY
  8. DILTIAZEM [Concomitant]
     Indication: COLITIS ULCERATIVE
     Dosage: 3 TIMES DAILY BEFORE EACH MEAL
  9. PROBIOTIC [Concomitant]
     Indication: CROHN^S DISEASE
     Dosage: ALIGN DAILY
  10. PROBIOTIC [Concomitant]
     Indication: COLITIS ULCERATIVE
  11. VITAMIN D [Concomitant]
     Indication: PRODUCT USED FOR UNKNOWN INDICATION
     Dosage: 1000MG DAILY
  12. MAGNESIUM [Concomitant]
     Indication: PRODUCT USED FOR UNKNOWN INDICATION
  13. BONE-UP [Concomitant]
     Indication: VITAMIN SUPPLEMENTATION
  14. COLACE [Concomitant]
     Indication: CROHN^S DISEASE
  15. COLACE [Concomitant]
     Indication: COLITIS ULCERATIVE
  16. LIALDA [Concomitant]
     Indication: CROHN^S DISEASE
  17. LIALDA [Concomitant]
     Indication: COLITIS
  18. BUDESONIDE [Concomitant]
     Indication: CROHN^S DISEASE
     Dosage: 3 CAPSULES THREE TIMES DAILY
  19. BUDESONIDE [Concomitant]
     Indication: COLITIS ULCERATIVE
  20. MESALAMINE [Concomitant]
     Indication: CROHN^S DISEASE
     Dosage: 1 BOTTLE AT BEDTIME
  21. MESALAMINE [Concomitant]
     Indication: COLITIS ULCERATIVE
  22. BIESTROGEN [Concomitant]
     Indication: MENOPAUSAL SYMPTOMS
  23. BIESTROGEN [Concomitant]
     Indication: MENOPAUSAL SYMPTOMS
  24. METAMUCIL [Concomitant]
     Indication: PRODUCT USED FOR UNKNOWN INDICATION

REACTIONS (1)
  - Injection site pain [Recovered/Resolved]
